FAERS Safety Report 21856642 (Version 1)
Quarter: 2023Q1

REPORT INFORMATION
  Report Type: Spontaneous
  Country: GB (occurrence: GB)
  Receive Date: 20230113
  Receipt Date: 20230113
  Transmission Date: 20230418
  Serious: Yes (Disabling, Other)
  Sender: FDA-Public Use
  Company Number: GB-STRIDES ARCOLAB LIMITED-2023SP000617

PATIENT
  Age: 68 Year
  Sex: Male

DRUGS (5)
  1. TRAVOPROST [Suspect]
     Active Substance: TRAVOPROST
     Indication: Open angle glaucoma
     Dosage: UNK, QD
     Route: 065
  2. HYDROCORTISONE [Suspect]
     Active Substance: HYDROCORTISONE
     Indication: Open angle glaucoma
     Dosage: UNK
     Route: 065
  3. BRIMONIDINE [Suspect]
     Active Substance: BRIMONIDINE TARTRATE
     Indication: Open angle glaucoma
     Dosage: UNK, BID (TWICE DAILY)
     Route: 065
  4. BRINZOLAMIDE\TIMOLOL [Suspect]
     Active Substance: BRINZOLAMIDE\TIMOLOL
     Indication: Open angle glaucoma
     Dosage: UNK, BID (TWICE DAILY)
     Route: 065
  5. ACETAZOLAMIDE [Suspect]
     Active Substance: ACETAZOLAMIDE
     Indication: Open angle glaucoma
     Dosage: UNK
     Route: 065

REACTIONS (6)
  - Keratopathy [Recovered/Resolved]
  - Visual field defect [Unknown]
  - Punctate keratitis [Recovered/Resolved]
  - Drug ineffective for unapproved indication [Unknown]
  - Tear break up time decreased [Unknown]
  - Conjunctival hyperaemia [Recovered/Resolved]
